FAERS Safety Report 8255227-8 (Version None)
Quarter: 2012Q1

REPORT INFORMATION
  Report Type: 
  Country: None (occurrence: None)
  Receive Date: 20120322
  Receipt Date: 20111221
  Transmission Date: 20120608
  Serious: Yes (Hospitalization)
  Sender: FDA-Public Use
  Company Number: UTC-013834

PATIENT
  Sex: Female
  Weight: 61.4 kg

DRUGS (3)
  1. DIURETICS (DIURETICS) [Concomitant]
  2. TYVASO [Suspect]
     Indication: COR PULMONALE CHRONIC
     Dosage: 18-54 MICROGRAMS (4 IN 1 D), INHALATION
     Route: 055
     Dates: start: 20100316
  3. REVATIO [Concomitant]

REACTIONS (4)
  - LIVER DISORDER [None]
  - LIVER TRANSPLANT [None]
  - RENAL TRANSPLANT [None]
  - RENAL DISORDER [None]
